FAERS Safety Report 5527848-4 (Version None)
Quarter: 2007Q4

REPORT INFORMATION
  Report Type: 
  Country: None (occurrence: None)
  Receive Date: 20071128
  Receipt Date: 20071119
  Transmission Date: 20080405
  Serious: Yes (Other)
  Sender: FDA-Public Use
  Company Number: US-PURDUE-USA_2007_0030320

PATIENT
  Sex: Female

DRUGS (3)
  1. OXYCONTIN [Suspect]
     Indication: DRUG ABUSE
     Dosage: UNK MG, UNK
     Route: 048
  2. VICODIN [Suspect]
     Indication: DRUG ABUSE
     Dosage: UNK MG, UNK
     Route: 048
  3. HEROIN [Suspect]
     Indication: DRUG ABUSE
     Dosage: UNK, UNK

REACTIONS (5)
  - BLOOD PRESSURE INCREASED [None]
  - HAEMATEMESIS [None]
  - MALAISE [None]
  - SUBSTANCE ABUSE [None]
  - WITHDRAWAL SYNDROME [None]
